FAERS Safety Report 12841490 (Version 2)
Quarter: 2017Q3

REPORT INFORMATION
  Report Type: Spontaneous
  Country: JP (occurrence: JP)
  Receive Date: 20161012
  Receipt Date: 20170929
  Transmission Date: 20171127
  Serious: Yes (Hospitalization)
  Sender: FDA-Public Use
  Company Number: JP-OTSUKA-JP-2011-12053

PATIENT
  Age: 47 Year
  Sex: Male

DRUGS (2)
  1. PLETAAL OD TABLETS 50MG [Suspect]
     Active Substance: CILOSTAZOL
     Indication: CAROTID ARTERY OCCLUSION
     Dosage: UNK
     Route: 048
     Dates: end: 200305
  2. PLETAAL OD TABLETS 50MG [Suspect]
     Active Substance: CILOSTAZOL
     Dosage: UNK
     Route: 048

REACTIONS (1)
  - Artery dissection [Unknown]

NARRATIVE: CASE EVENT DATE: 20030501
